FAERS Safety Report 6468812-0 (Version None)
Quarter: 2009Q4

REPORT INFORMATION
  Report Type: 
  Country: None (occurrence: None)
  Receive Date: 20091203
  Receipt Date: 20080123
  Transmission Date: 20100525
  Serious: Yes (Life-Threatening, Hospitalization, Other)
  Sender: FDA-Public Use
  Company Number: GB-ELI_LILLY_AND_COMPANY-GBS020110076

PATIENT
  Sex: Male
  Weight: 69.841 kg

DRUGS (2)
  1. ZYPREXA [Suspect]
     Indication: PSYCHOTIC DISORDER
     Dosage: 10 OR 15MG, UNKNOWN
     Route: 048
     Dates: start: 20011010
  2. SERTRALINE HCL [Concomitant]
     Indication: DEPRESSION
     Dosage: 100 MG, UNKNOWN
     Route: 048
     Dates: start: 20010822

REACTIONS (2)
  - DEEP VEIN THROMBOSIS [None]
  - SEDATION [None]
